FAERS Safety Report 24942753 (Version 1)
Quarter: 2025Q1

REPORT INFORMATION
  Report Type: Spontaneous
  Country: SG (occurrence: SG)
  Receive Date: 20250207
  Receipt Date: 20250207
  Transmission Date: 20250409
  Serious: Yes (Life-Threatening, Hospitalization, Other)
  Sender: DR REDDYS
  Company Number: SG-RDY-SGP/2025/02/001793

PATIENT
  Age: 40 Year
  Sex: Female

DRUGS (6)
  1. ATORVASTATIN [Suspect]
     Active Substance: ATORVASTATIN
     Indication: Product used for unknown indication
  2. SPIRONOLACTONE [Suspect]
     Active Substance: SPIRONOLACTONE
     Indication: Product used for unknown indication
  3. LOSARTAN [Suspect]
     Active Substance: LOSARTAN
     Indication: Product used for unknown indication
  4. FUROSEMIDE [Suspect]
     Active Substance: FUROSEMIDE
     Indication: Product used for unknown indication
  5. IRON POLYMALTOSE [Suspect]
     Active Substance: IRON POLYMALTOSE
     Indication: Product used for unknown indication
  6. ERYTHROPOIETIN [Suspect]
     Active Substance: ERYTHROPOIETIN
     Indication: Product used for unknown indication

REACTIONS (1)
  - MELAS syndrome [Recovered/Resolved]
